FAERS Safety Report 4708791-7 (Version None)
Quarter: 2005Q3

REPORT INFORMATION
  Report Type: 
  Country: None (occurrence: None)
  Receive Date: 20050705
  Receipt Date: 20050624
  Transmission Date: 20060218
  Serious: Yes (Hospitalization)
  Sender: FDA-Public Use
  Company Number: 2005-05-1532

PATIENT
  Age: 64 Year
  Sex: Female
  Weight: 61 kg

DRUGS (5)
  1. PEG-INTRON [Suspect]
     Indication: HEPATITIS C
     Dosage: 50 MCG QW SUBCUTANEOUS
     Route: 058
     Dates: start: 20050118, end: 20050319
  2. REBETOL [Suspect]
     Indication: HEPATITIS C
     Dosage: 400 MG ORAL
     Route: 048
     Dates: start: 20050118, end: 20050326
  3. PREDNISOLONE [Concomitant]
  4. ALDACTONE [Concomitant]
  5. ALTAT CAPSULES [Concomitant]

REACTIONS (3)
  - HEPATIC NEOPLASM MALIGNANT [None]
  - LIVER TRANSPLANT [None]
  - PLATELET COUNT DECREASED [None]
